FAERS Safety Report 5816446-0 (Version None)
Quarter: 2008Q3

REPORT INFORMATION
  Report Type: 
  Country: None (occurrence: None)
  Receive Date: 20080721
  Receipt Date: 20080521
  Transmission Date: 20090109
  Serious: No
  Sender: FDA-Public Use
  Company Number: US-BAUSCH-2008BL002270

PATIENT
  Age: 75 Year
  Sex: Male
  Weight: 77 kg

DRUGS (3)
  1. OPCON-A [Suspect]
     Indication: EYE IRRIGATION
     Route: 047
     Dates: start: 19980521
  2. VERAPAMIL [Concomitant]
     Indication: TACHYCARDIA
     Route: 048
  3. MULTI-VITAMINS [Concomitant]
     Route: 048

REACTIONS (1)
  - EYE IRRITATION [None]
